FAERS Safety Report 4403771-3 (Version None)
Quarter: 2004Q3

REPORT INFORMATION
  Report Type: 
  Country: None (occurrence: None)
  Receive Date: 20040719
  Receipt Date: 20040706
  Transmission Date: 20050211
  Serious: Yes (Death)
  Sender: FDA-Public Use
  Company Number: 163-20785-04070312 (0)

PATIENT

DRUGS (2)
  1. THALIDOMID (THALIDOMIDE) (CAPSULES) [Suspect]
     Indication: RENAL CELL CARCINOMA STAGE UNSPECIFIED
     Dosage: ORAL
     Route: 048
  2. ALPHA 2 INTERFERON 2B (INTERFERON ALFA-2B) [Suspect]
     Indication: RENAL CELL CARCINOMA STAGE UNSPECIFIED
     Dosage: 1 MIU/DOSE, BID SUBCUTANEOUS
     Route: 058

REACTIONS (5)
  - CARDIAC FAILURE CONGESTIVE [None]
  - INFECTION [None]
  - MYOCARDIAL INFARCTION [None]
  - MYOCARDIAL ISCHAEMIA [None]
  - PULMONARY EMBOLISM [None]
